FAERS Safety Report 6028994-1 (Version None)
Quarter: 2009Q1

REPORT INFORMATION
  Report Type: 
  Country: None (occurrence: None)
  Receive Date: 20090106
  Receipt Date: 20081228
  Transmission Date: 20090719
  Serious: Yes (Other)
  Sender: FDA-Public Use
  Company Number: US-AMGEN-QUU325941

PATIENT
  Sex: Female

DRUGS (1)
  1. ENBREL [Suspect]
     Indication: RHEUMATOID ARTHRITIS
     Route: 058
     Dates: start: 20061101

REACTIONS (6)
  - CRYING [None]
  - EPILEPSY [None]
  - MOOD ALTERED [None]
  - NEUROPATHY PERIPHERAL [None]
  - RHEUMATOID ARTHRITIS [None]
  - SENSATION OF PRESSURE [None]
